FAERS Safety Report 9517467 (Version 1)
Quarter: 2013Q3

REPORT INFORMATION
  Report Type: Spontaneous
  Country: US (occurrence: US)
  Receive Date: 20130911
  Receipt Date: 20130911
  Transmission Date: 20140515
  Serious: No
  Sender: FDA-Public Use
  Company Number: US-009507513-1309USA003436

PATIENT
  Sex: Male

DRUGS (3)
  1. PEGINTRON [Suspect]
     Indication: HEPATITIS C
     Dosage: REDIPEN, UNK
     Dates: start: 20120325, end: 20130225
  2. REBETOL [Suspect]
     Indication: HEPATITIS C
     Dosage: UNK
     Route: 048
     Dates: start: 20120325, end: 20130225
  3. TELAPREVIR [Suspect]
     Indication: HEPATITIS C
     Dosage: UNK
     Dates: start: 20120325, end: 20130225

REACTIONS (4)
  - Hepatitis C [Unknown]
  - Hepatitis C virus test positive [Unknown]
  - Drug ineffective [Unknown]
  - Therapeutic response decreased [Unknown]
